FAERS Safety Report 7799213-0 (Version None)
Quarter: 2011Q4

REPORT INFORMATION
  Report Type: 
  Country: None (occurrence: None)
  Receive Date: 20111005
  Receipt Date: 20111005
  Transmission Date: 20120403
  Serious: Yes (Other)
  Sender: FDA-Public Use
  Company Number: None

PATIENT
  Age: 69 Year
  Sex: Male
  Weight: 73.392 kg

DRUGS (3)
  1. OXYCODONE AND ACETAMINOPHEN [Suspect]
     Indication: BONE DISORDER
     Dosage: 1-2 P.O. EVERY 4-6 HOURS PRN
     Route: 048
     Dates: start: 20110518
  2. OXYCODONE AND ACETAMINOPHEN [Suspect]
     Indication: CHONDROPATHY
     Dosage: 1-2 P.O. EVERY 4-6 HOURS PRN
     Route: 048
     Dates: start: 20110518
  3. ROXICET [Suspect]
     Indication: MULTIPLE MYELOMA
     Dosage: 1-2 P.O. EVERY 4-6 HOURS PRN
     Route: 048
     Dates: start: 20110407, end: 20111001

REACTIONS (2)
  - PRODUCT SUBSTITUTION ISSUE [None]
  - DRUG INEFFECTIVE [None]
